FAERS Safety Report 7570598-3 (Version None)
Quarter: 2011Q2

REPORT INFORMATION
  Report Type: 
  Country: None (occurrence: None)
  Receive Date: 20110624
  Receipt Date: 20110621
  Transmission Date: 20111010
  Serious: Yes (Hospitalization, Other)
  Sender: FDA-Public Use
  Company Number: US-SANOFI-AVENTIS-2011SA039554

PATIENT
  Age: 73 Year
  Sex: Female
  Weight: 64.86 kg

DRUGS (4)
  1. MULTAQ [Suspect]
     Route: 048
     Dates: start: 20100901
  2. LOSARTAN POTASSIUM [Concomitant]
     Route: 065
  3. COUMADIN [Concomitant]
     Route: 065
  4. NADOLOL [Suspect]
     Indication: SUPRAVENTRICULAR TACHYCARDIA

REACTIONS (9)
  - WHEEZING [None]
  - WEIGHT INCREASED [None]
  - GASTROENTERITIS ESCHERICHIA COLI [None]
  - DIARRHOEA HAEMORRHAGIC [None]
  - FLUID RETENTION [None]
  - OEDEMA PERIPHERAL [None]
  - FLUID OVERLOAD [None]
  - DYSPNOEA [None]
  - CARDIAC FAILURE ACUTE [None]
